FAERS Safety Report 4996629-2 (Version None)
Quarter: 2006Q2

REPORT INFORMATION
  Report Type: 
  Country: None (occurrence: None)
  Receive Date: 20060509
  Receipt Date: 20060405
  Transmission Date: 20061013
  Serious: Yes (Other)
  Sender: FDA-Public Use
  Company Number: 2006GB00582

PATIENT
  Age: 58 Year
  Sex: Female

DRUGS (1)
  1. SEROQUEL [Suspect]
     Indication: VASCULAR DEMENTIA
     Route: 048
     Dates: start: 20060329

REACTIONS (2)
  - CRYING [None]
  - HYPOMANIA [None]
